FAERS Safety Report 8401757-5 (Version None)
Quarter: 2012Q2

REPORT INFORMATION
  Report Type: 
  Country: None (occurrence: None)
  Receive Date: 20120529
  Receipt Date: 20120523
  Transmission Date: 20120825
  Serious: Yes (Life-Threatening, Hospitalization)
  Sender: FDA-Public Use
  Company Number: 2012124408

PATIENT
  Age: 43 Year
  Sex: Male
  Weight: 72 kg

DRUGS (4)
  1. FRAGMIN [Suspect]
     Dosage: INTRAMUSCULAR
     Route: 030
     Dates: start: 20120303
  2. NOVALGIN (METAMIZOLE SODIUM) [Suspect]
     Indication: MULTIPLE FRACTURES
     Dosage: 500 MG, 2X/DAY, ORAL
     Route: 048
     Dates: start: 20120303, end: 20120419
  3. IBUPROFEN [Suspect]
     Indication: MULTIPLE FRACTURES
     Dosage: 400 MG, 1X/DAY, ORAL
     Route: 048
     Dates: start: 20120303, end: 20120419
  4. FLUOXETINE HCL [Concomitant]

REACTIONS (7)
  - NECROTISING FASCIITIS [None]
  - PYREXIA [None]
  - INJECTION SITE INFECTION [None]
  - THROMBOCYTOPENIA [None]
  - CHILLS [None]
  - AGRANULOCYTOSIS [None]
  - NEUTROPENIA [None]
